FAERS Safety Report 8222515-0 (Version None)
Quarter: 2012Q1

REPORT INFORMATION
  Report Type: 
  Country: None (occurrence: None)
  Receive Date: 20120320
  Receipt Date: 20120312
  Transmission Date: 20120608
  Serious: Yes (Hospitalization, Disabling)
  Sender: FDA-Public Use
  Company Number: CA-CELGENEUS-028-21880-12020128

PATIENT
  Sex: Male

DRUGS (13)
  1. METFORMIN HCL [Concomitant]
     Dosage: 250 MILLIGRAM
     Route: 065
  2. MULTAQ [Concomitant]
     Dosage: 400 MILLIGRAM
     Route: 065
  3. PANTOPRAZOLE [Concomitant]
     Dosage: 40 MILLIGRAM
     Route: 065
  4. SYNTHROID [Concomitant]
     Dosage: 75 MILLIGRAM
     Route: 065
  5. CLARITIN [Concomitant]
     Dosage: 10 MILLIGRAM
     Route: 065
  6. ASPIRIN [Concomitant]
     Dosage: 81 MILLIGRAM
     Route: 065
  7. VITAMIN D [Concomitant]
     Route: 065
  8. DIGOXIN [Concomitant]
     Dosage: .0625 MILLIGRAM
     Route: 065
  9. DEXAMETHASONE [Concomitant]
     Dosage: 40 MILLIGRAM
     Route: 065
  10. TEGRETOL [Concomitant]
     Dosage: 100 MILLIGRAM
     Route: 065
  11. REVLIMID [Suspect]
     Indication: MULTIPLE MYELOMA
     Dosage: 5 MILLIGRAM
     Route: 048
     Dates: start: 20120116, end: 20120130
  12. ATIVAN [Concomitant]
     Dosage: .5 MILLIGRAM
     Route: 065
  13. METOPROLOL SUCCINATE [Concomitant]
     Dosage: 25 MILLIGRAM
     Route: 065

REACTIONS (2)
  - CONVULSION [None]
  - URINARY TRACT INFECTION [None]
